FAERS Safety Report 8887641 (Version 1)
Quarter: 2012Q4

REPORT INFORMATION
  Report Type: 
  Country: DE (occurrence: DE)
  Receive Date: 20121105
  Receipt Date: 20121105
  Transmission Date: 20130627
  Serious: Yes (Hospitalization)
  Sender: FDA-Public Use
  Company Number: DE-MYLANLABS-2012S1022072

PATIENT
  Age: 29 Year
  Sex: Male
  Weight: 72.8 kg

DRUGS (3)
  1. CITALOPRAM [Suspect]
     Indication: DEPRESSION
     Dosage: daily dose: 20 Mg millgram(s) every Days
     Route: 048
  2. HUSTENSTILLER [Suspect]
     Indication: PRODUCT USED FOR UNKNOWN INDICATION
     Dosage: took 40 df in 3 to 4 days
     Route: 048
  3. TAXILAN /00162501/ [Concomitant]
     Indication: RESTLESSNESS
     Dosage: daily dose: 75 Mg millgram(s) every Days
     Route: 048

REACTIONS (5)
  - Acute psychosis [Recovering/Resolving]
  - Delusion of grandeur [Recovering/Resolving]
  - Hallucination, visual [Recovering/Resolving]
  - Pelvic fracture [Unknown]
  - Liver function test abnormal [Recovering/Resolving]
